FAERS Safety Report 20782164 (Version 5)
Quarter: 2023Q4

REPORT INFORMATION
  Report Type: Report from Study
  Country: JP (occurrence: JP)
  Receive Date: 20220504
  Receipt Date: 20231205
  Transmission Date: 20240110
  Serious: Yes (Hospitalization, Other)
  Sender: FDA-Public Use
  Company Number: JP-ASTELLAS-2022JP006232

PATIENT
  Age: 70 Year
  Sex: Male

DRUGS (5)
  1. ENFORTUMAB VEDOTIN [Suspect]
     Active Substance: ENFORTUMAB VEDOTIN
     Indication: Transitional cell carcinoma
     Dosage: 1.25 MG/KG, ONCE WEEKLY IN 3 CONSECUTIVE WEEKS, AND THEN INTERRUPTED IN THE 4TH WEEK
     Route: 041
     Dates: start: 20220124, end: 20220307
  2. ENFORTUMAB VEDOTIN [Suspect]
     Active Substance: ENFORTUMAB VEDOTIN
     Dosage: 1.25 MG/KG, ONCE WEEKLY IN 3 CONSECUTIVE WEEKS, AND THEN INTERRUPTED IN THE 4TH WEEK
     Route: 041
     Dates: start: 20220328, end: 20220411
  3. ENFORTUMAB VEDOTIN [Suspect]
     Active Substance: ENFORTUMAB VEDOTIN
     Route: 065
     Dates: start: 20220620, end: 20220704
  4. ENFORTUMAB VEDOTIN [Suspect]
     Active Substance: ENFORTUMAB VEDOTIN
     Route: 065
     Dates: start: 20220808, end: 20220822
  5. ENFORTUMAB VEDOTIN [Suspect]
     Active Substance: ENFORTUMAB VEDOTIN
     Route: 065
     Dates: start: 20221107, end: 20221107

REACTIONS (5)
  - COVID-19 [Recovering/Resolving]
  - Incarcerated parastomal hernia [Recovered/Resolved]
  - Ileus [Recovered/Resolved]
  - Shunt occlusion [Recovered/Resolved]
  - Inappropriate schedule of product administration [Unknown]

NARRATIVE: CASE EVENT DATE: 20220328
